FAERS Safety Report 5320847-7 (Version None)
Quarter: 2007Q2

REPORT INFORMATION
  Report Type: 
  Country: None (occurrence: None)
  Receive Date: 20070502
  Receipt Date: 20070418
  Transmission Date: 20071010
  Serious: Yes (Hospitalization)
  Sender: FDA-Public Use
  Company Number: FABR-11331

PATIENT
  Age: 35 Year
  Sex: Male
  Weight: 97.7 kg

DRUGS (9)
  1. FABRAZYME [Suspect]
     Indication: FABRY'S DISEASE
     Dosage: 105 MG Q2WKS IV
     Route: 042
  2. FABRAZYME [Suspect]
     Indication: FABRY'S DISEASE
     Dosage: 1 MG/KG Q2WKS IV
     Route: 042
     Dates: start: 20000714, end: 20030626
  3. FABRAZYME [Suspect]
     Indication: FABRY'S DISEASE
     Dosage: 1 MG/KG Q2WKS IV
     Route: 042
     Dates: start: 19980506, end: 19980629
  4. LEXAPRO [Concomitant]
  5. PLAVIX [Concomitant]
  6. AMITRIPTYLINE HCL [Concomitant]
  7. FOSINOPRIL SODIUM [Concomitant]
  8. MAXZIDE [Concomitant]
  9. XANAX. MFR: UPJOHN COMPANY [Concomitant]

REACTIONS (16)
  - ABDOMINAL PAIN [None]
  - APPENDICITIS [None]
  - COLITIS [None]
  - DEPRESSION [None]
  - DIARRHOEA [None]
  - ENLARGED UVULA [None]
  - EPILEPSY [None]
  - FACE OEDEMA [None]
  - IMPAIRED WORK ABILITY [None]
  - NAUSEA [None]
  - OBSTRUCTIVE AIRWAYS DISORDER [None]
  - OEDEMA PERIPHERAL [None]
  - PAIN IN EXTREMITY [None]
  - PETECHIAE [None]
  - VOMITING [None]
  - WEIGHT DECREASED [None]
